FAERS Safety Report 6823038-3 (Version None)
Quarter: 2010Q3

REPORT INFORMATION
  Report Type: 
  Country: None (occurrence: None)
  Receive Date: 20100708
  Receipt Date: 20100630
  Transmission Date: 20110219
  Serious: Yes (Other)
  Sender: FDA-Public Use
  Company Number: B0659174A

PATIENT
  Age: 28 Year
  Sex: Male
  Weight: 75 kg

DRUGS (3)
  1. VENTOLIN [Suspect]
     Indication: ASTHMA
     Route: 055
     Dates: start: 20050101
  2. CETIRIZINE HCL [Concomitant]
     Dosage: 10MG PER DAY
     Route: 065
  3. TELFAST [Concomitant]
     Route: 065

REACTIONS (4)
  - EYE SWELLING [None]
  - IDIOPATHIC URTICARIA [None]
  - URTICARIA [None]
  - URTICARIA CHRONIC [None]
